FAERS Safety Report 11448752 (Version 1)
Quarter: 2015Q3

REPORT INFORMATION
  Report Type: Spontaneous
  Country: US (occurrence: US)
  Receive Date: 20150902
  Receipt Date: 20150902
  Transmission Date: 20151125
  Serious: No
  Sender: FDA-Public Use
  Company Number: US-PFIZER INC-2015282760

PATIENT
  Age: 55 Year
  Sex: Female

DRUGS (6)
  1. LORAZEPAM. [Concomitant]
     Active Substance: LORAZEPAM
     Dosage: 1 MG, AS NEEDED (QD PRN)
  2. ABILIFY [Concomitant]
     Active Substance: ARIPIPRAZOLE
     Dosage: 10 MG, 1X/DAY
  3. VENTOLIN [Concomitant]
     Active Substance: ALBUTEROL SULFATE
     Dosage: 2 PUFFS Q 4 HR PRN
  4. LAMICTAL [Concomitant]
     Active Substance: LAMOTRIGINE
     Dosage: 300MG 2 AT BEDTIME
  5. FOLIC ACID. [Concomitant]
     Active Substance: FOLIC ACID
     Dosage: 800 MG, 1X/DAY
  6. LYRICA [Suspect]
     Active Substance: PREGABALIN
     Indication: BIPOLAR DISORDER
     Dosage: 100 MG, 3X/DAY
     Route: 048

REACTIONS (3)
  - Insomnia [Unknown]
  - Pain [Unknown]
  - Burning sensation [Unknown]
